FAERS Safety Report 19310002 (Version 1)
Quarter: 2021Q2

REPORT INFORMATION
  Report Type: Report from Study
  Country: ES (occurrence: ES)
  Receive Date: 20210526
  Receipt Date: 20210526
  Transmission Date: 20210717
  Serious: Yes (Other)
  Sender: FDA-Public Use
  Company Number: ES-TAKEDA-ES202033189

PATIENT
  Age: 42 Year
  Sex: Female

DRUGS (24)
  1. MULTIVITAMINS [VITAMINS NOS] [Concomitant]
     Active Substance: VITAMINS
     Indication: SHORT-BOWEL SYNDROME
     Dosage: 2 DOSAGE FORM, QD
     Route: 065
  2. ALMAX [ALMAGATE] [Concomitant]
     Active Substance: ALMAGATE
     Indication: SHORT-BOWEL SYNDROME
     Dosage: 2 DOSAGE FORM (CAP), BID
     Route: 065
     Dates: start: 20200219
  3. IDEOS [Concomitant]
     Active Substance: CALCIUM CARBONATE\CHOLECALCIFEROL
     Indication: SHORT-BOWEL SYNDROME
     Dosage: 1 DOSAGE FORM (CAP), BID
     Route: 065
  4. MAGNOGENE [MAGNESIUM CHLORIDE] [Concomitant]
     Dosage: 53 MILLIGRAM, TID
     Route: 048
     Dates: start: 20201117
  5. TEDUGLUTIDE [Suspect]
     Active Substance: TEDUGLUTIDE
     Indication: SHORT-BOWEL SYNDROME
     Dosage: 2.71 MILLIGRAM (0.05 MILLIGRAM/KILOGRAM DAILY DOSE, 7 DOSES PER WEEK), OTHER
     Route: 065
     Dates: start: 20180507, end: 20190918
  6. TEDUGLUTIDE [Suspect]
     Active Substance: TEDUGLUTIDE
     Dosage: 0.500 MILLIGRAM/KILOGRAM, QD
     Route: 065
     Dates: start: 20180507, end: 20190918
  7. FUROSEMIDE. [Concomitant]
     Active Substance: FUROSEMIDE
     Indication: ASCITES
  8. TEDUGLUTIDE [Suspect]
     Active Substance: TEDUGLUTIDE
     Dosage: 0.500 MILLIGRAM/KILOGRAM, QD
     Route: 065
     Dates: start: 20180507, end: 20190918
  9. SPIRONOLACTONE. [Concomitant]
     Active Substance: SPIRONOLACTONE
     Indication: ASCITES
  10. SINTROM [Concomitant]
     Active Substance: ACENOCOUMAROL
     Indication: EMBOLISM
     Dosage: 1 MILLIGRAM, ACCORDING TO THE HEMATOLOGY SERVICE
     Route: 065
  11. TEDUGLUTIDE [Suspect]
     Active Substance: TEDUGLUTIDE
     Indication: SHORT-BOWEL SYNDROME
     Dosage: 2.71 MILLIGRAM (0.05 MILLIGRAM/KILOGRAM DAILY DOSE, 7 DOSES PER WEEK), OTHER
     Route: 065
     Dates: start: 20180507, end: 20190918
  12. TEDUGLUTIDE [Suspect]
     Active Substance: TEDUGLUTIDE
     Indication: SHORT-BOWEL SYNDROME
     Dosage: 2.71 MILLIGRAM (0.05 MILLIGRAM/KILOGRAM DAILY DOSE, 7 DOSES PER WEEK), OTHER
     Route: 065
     Dates: start: 20180507, end: 20190918
  13. TEDUGLUTIDE [Suspect]
     Active Substance: TEDUGLUTIDE
     Indication: SHORT-BOWEL SYNDROME
     Dosage: 2.71 MILLIGRAM (0.05 MILLIGRAM/KILOGRAM DAILY DOSE, 7 DOSES PER WEEK), OTHER
     Route: 065
     Dates: start: 20180507, end: 20190918
  14. HIDROFEROL CHOQUE [Concomitant]
     Indication: SHORT-BOWEL SYNDROME
     Dosage: 3 MILLIGRAM, 3/WEEK
     Route: 065
  15. LEVOTHROID [Concomitant]
     Active Substance: LEVOTHYROXINE SODIUM
     Indication: PRIMARY HYPOTHYROIDISM
     Dosage: 300 MICROGRAM, QD
     Route: 065
  16. FORTASEC [LOPERAMIDE] [Concomitant]
     Active Substance: LOPERAMIDE
     Indication: SHORT-BOWEL SYNDROME
     Dosage: 2 MILLIGRAM, BID
     Route: 065
  17. SIMETHICONE (DIMETHICONE) [Concomitant]
     Active Substance: DIMETHICONE
     Dosage: UNK, TID
     Route: 048
     Dates: start: 20200219
  18. NORPRAMIN [OMEPRAZOLE] [Concomitant]
     Indication: SHORT-BOWEL SYNDROME
     Dosage: 2 DOSAGE FORM (CAP), BID
     Route: 065
  19. ALMAX [ALMAGATE] [Concomitant]
     Active Substance: ALMAGATE
     Dosage: UNK, BID
     Route: 048
     Dates: start: 20210219
  20. MAGNOGENE [MAGNESIUM CHLORIDE] [Concomitant]
     Indication: SHORT-BOWEL SYNDROME
     Dosage: 53 MILLIGRAM, TID
     Route: 065
  21. TEDUGLUTIDE [Suspect]
     Active Substance: TEDUGLUTIDE
     Dosage: 0.500 MILLIGRAM/KILOGRAM, QD
     Route: 065
     Dates: start: 20180507, end: 20190918
  22. TEDUGLUTIDE [Suspect]
     Active Substance: TEDUGLUTIDE
     Dosage: 0.500 MILLIGRAM/KILOGRAM, QD
     Route: 065
     Dates: start: 20180507, end: 20190918
  23. SIMETHICONE (DIMETHICONE) [Concomitant]
     Active Substance: DIMETHICONE
     Indication: SHORT-BOWEL SYNDROME
     Dosage: 6 TIMES A DAY
     Route: 065
     Dates: start: 20200219
  24. AUXINA A+E [Concomitant]
     Active Substance: RETINOL\TOCOPHEROL
     Indication: SHORT-BOWEL SYNDROME
     Dosage: 5000 INTERNATIONAL UNIT, BID
     Route: 048
     Dates: start: 20200219

REACTIONS (1)
  - Ascites [Recovered/Resolved]

NARRATIVE: CASE EVENT DATE: 20200630
